FAERS Safety Report 16516495 (Version 1)
Quarter: 2019Q3

REPORT INFORMATION
  Report Type: Spontaneous
  Country: US (occurrence: US)
  Receive Date: 20190702
  Receipt Date: 20190702
  Transmission Date: 20191004
  Serious: No
  Sender: FDA-Public Use
  Company Number: US-GALDERMA-US19003103

PATIENT
  Age: 21 Year
  Sex: Female

DRUGS (5)
  1. DIFFERIN DAILY DEEP CLEANSER WITH BPO [Suspect]
     Active Substance: BENZOYL PEROXIDE
     Indication: ACNE
     Route: 061
     Dates: start: 20190109
  2. DIFFERIN GEL [Suspect]
     Active Substance: ADAPALENE
     Indication: ACNE
     Dosage: 0.1%
     Route: 061
     Dates: start: 20190109
  3. CETAPHIL GENTLE SKIN CLEANSER [Suspect]
     Active Substance: COSMETICS
     Indication: ACNE
     Route: 061
     Dates: start: 20190109
  4. CETAPHIL DERMACONTROL SPF 30 [Suspect]
     Active Substance: AVOBENZONE\OCTISALATE\OCTOCRYLENE
     Indication: ACNE
     Route: 061
     Dates: start: 20190109, end: 20190110
  5. CETAPHIL [Suspect]
     Active Substance: AVOBENZONE\OCTOCRYLENE\TRICLOSAN
     Indication: ACNE
     Route: 061
     Dates: start: 20190109, end: 20190110

REACTIONS (3)
  - Acne [Not Recovered/Not Resolved]
  - Dry skin [Not Recovered/Not Resolved]
  - Seborrhoea [Recovered/Resolved]

NARRATIVE: CASE EVENT DATE: 201901
